FAERS Safety Report 20536786 (Version 2)
Quarter: 2022Q3

REPORT INFORMATION
  Report Type: Spontaneous
  Country: CH (occurrence: CH)
  Receive Date: 20220302
  Receipt Date: 20220815
  Transmission Date: 20221026
  Serious: Yes (Hospitalization)
  Sender: FDA-Public Use
  Company Number: None

PATIENT
  Age: 16 Year
  Sex: Male

DRUGS (20)
  1. DARZALEX [Suspect]
     Active Substance: DARATUMUMAB
     Indication: Precursor T-lymphoblastic lymphoma/leukaemia stage III
     Dosage: 3 DOSES AU TOTAL
     Route: 065
     Dates: start: 202106, end: 202107
  2. NELARABINE [Suspect]
     Active Substance: NELARABINE
     Indication: Precursor T-lymphoblastic lymphoma/leukaemia stage III
     Route: 065
     Dates: start: 20210607
  3. NELARABINE [Suspect]
     Active Substance: NELARABINE
     Route: 065
     Dates: start: 20210723
  4. ETOPOSIDE [Suspect]
     Active Substance: ETOPOSIDE
     Indication: Precursor T-lymphoblastic lymphoma/leukaemia stage III
     Route: 065
     Dates: start: 20210607, end: 202108
  5. ETOPOSIDE [Suspect]
     Active Substance: ETOPOSIDE
     Route: 065
     Dates: start: 20210723
  6. CYCLOPHOSPHAMIDE [Suspect]
     Active Substance: CYCLOPHOSPHAMIDE
     Indication: Precursor T-lymphoblastic lymphoma/leukaemia stage III
     Route: 065
     Dates: start: 20210607, end: 202108
  7. CYCLOPHOSPHAMIDE [Suspect]
     Active Substance: CYCLOPHOSPHAMIDE
     Route: 065
     Dates: start: 20210723
  8. LEVOFLOXACIN [Suspect]
     Active Substance: LEVOFLOXACIN
     Indication: Product used for unknown indication
     Route: 065
     Dates: start: 20210811
  9. VINCRISTINE [Suspect]
     Active Substance: VINCRISTINE
     Indication: Product used for unknown indication
     Dates: start: 20210819
  10. NAVITOCLAX [Concomitant]
     Active Substance: NAVITOCLAX
     Dates: start: 20210827
  11. VENETOCLAX [Concomitant]
     Active Substance: VENETOCLAX
     Dates: start: 20210817
  12. ESOMEPRAZOLE [Concomitant]
     Active Substance: ESOMEPRAZOLE
  13. DEXAMETHASONE [Concomitant]
     Active Substance: DEXAMETHASONE
  14. GABAPENTIN [Concomitant]
     Active Substance: GABAPENTIN
  15. POLYETHYLENE GLYCOLS [Concomitant]
     Active Substance: POLYETHYLENE GLYCOLS
  16. METHADONE [Concomitant]
     Active Substance: METHADONE HYDROCHLORIDE
  17. TRAMADOL [Concomitant]
     Active Substance: TRAMADOL
  18. VALACYCLOVIR HYDROCHLORIDE [Concomitant]
     Active Substance: VALACYCLOVIR HYDROCHLORIDE
  19. NIFEDIPINE [Concomitant]
     Active Substance: NIFEDIPINE
  20. BROMAZEPAM [Concomitant]
     Active Substance: BROMAZEPAM

REACTIONS (3)
  - Peripheral sensorimotor neuropathy [Not Recovered/Not Resolved]
  - Off label use [Unknown]
  - Product use in unapproved indication [Unknown]

NARRATIVE: CASE EVENT DATE: 20210601
